FAERS Safety Report 6291780-1 (Version None)
Quarter: 2009Q3

REPORT INFORMATION
  Report Type: 
  Country: None (occurrence: None)
  Receive Date: 20090730
  Receipt Date: 20090724
  Transmission Date: 20100115
  Serious: Yes (Hospitalization)
  Sender: FDA-Public Use
  Company Number: US-GENENTECH-287552

PATIENT
  Sex: Female

DRUGS (10)
  1. BLINDED ANTI-CD40 [Suspect]
     Indication: DIFFUSE LARGE B-CELL LYMPHOMA
     Dosage: 2 MG/KG, X1
     Route: 042
     Dates: start: 20090517, end: 20090517
  2. BLINDED PLACEBO [Suspect]
     Indication: DIFFUSE LARGE B-CELL LYMPHOMA
     Dosage: 2 MG/KG, X1
     Route: 042
     Dates: start: 20090517, end: 20090517
  3. BLINDED ANTI-CD40 [Suspect]
     Dosage: 4 MG/KG, X1
     Route: 042
     Dates: start: 20090520, end: 20090520
  4. BLINDED PLACEBO [Suspect]
     Dosage: 4 MG/KG, X1
     Route: 042
     Dates: start: 20090520, end: 20090520
  5. BLINDED ANTI-CD40 [Suspect]
     Dosage: 8 MG/KG, 1/WEEK
     Route: 042
     Dates: start: 20090526, end: 20090707
  6. BLINDED PLACEBO [Suspect]
     Dosage: 8 MG/KG, 1/WEEK
     Route: 042
     Dates: start: 20090526, end: 20090707
  7. RITUXAN [Suspect]
     Indication: DIFFUSE LARGE B-CELL LYMPHOMA
     Dosage: 375 MG/M2, Q3W
     Route: 042
     Dates: start: 20090516, end: 20090630
  8. ETOPOSIDE [Suspect]
     Indication: DIFFUSE LARGE B-CELL LYMPHOMA
     Dosage: 100 MG/M2, Q3W
     Route: 042
     Dates: start: 20090518, end: 20090703
  9. CARBOPLATIN [Suspect]
     Indication: DIFFUSE LARGE B-CELL LYMPHOMA
     Dosage: 5 MG/ML, Q3W
     Route: 042
     Dates: start: 20090519, end: 20090701
  10. IFOSFAMIDE [Suspect]
     Indication: DIFFUSE LARGE B-CELL LYMPHOMA
     Dosage: 5 G/M2, Q3W
     Route: 042
     Dates: start: 20090519, end: 20090701

REACTIONS (3)
  - GASTROINTESTINAL HAEMORRHAGE [None]
  - NEUTROPENIA [None]
  - THROMBOCYTOPENIA [None]
